FAERS Safety Report 21384184 (Version 1)
Quarter: 2022Q3

REPORT INFORMATION
  Report Type: Spontaneous
  Country: JP (occurrence: JP)
  Receive Date: 20220928
  Receipt Date: 20220928
  Transmission Date: 20221026
  Serious: Yes (Disabling, Other)
  Sender: FDA-Public Use
  Company Number: JP-NOVARTISPH-NVSJ2022JP098109

PATIENT
  Age: 89 Year
  Sex: Female

DRUGS (3)
  1. ANAPEINE [Suspect]
     Active Substance: ROPIVACAINE HYDROCHLORIDE
     Indication: Product used for unknown indication
     Dosage: UNK, ANAPEINE INJECTION 2MG/ML (0.2%100ML, 1 BAG)
     Route: 065
     Dates: start: 201601, end: 201601
  2. ANAPEINE [Suspect]
     Active Substance: ROPIVACAINE HYDROCHLORIDE
     Dosage: UNK, ANAPEINE INJECTION 7.5MG/ML (0.75%10ML, 1 TUBE)
     Route: 065
     Dates: start: 201601, end: 201601
  3. XYLOCAINE [Suspect]
     Active Substance: LIDOCAINE HYDROCHLORIDE
     Indication: Product used for unknown indication
     Dosage: UNK, 1% 10 ML VIAL
     Route: 065
     Dates: start: 201601, end: 201601

REACTIONS (2)
  - Diplegia [Unknown]
  - Motor dysfunction [Unknown]
